FAERS Safety Report 10158580 (Version 1)
Quarter: 2014Q2

REPORT INFORMATION
  Report Type: Report from Study
  Country: CA (occurrence: CA)
  Receive Date: 20140508
  Receipt Date: 20140508
  Transmission Date: 20141212
  Serious: Yes (Death, Hospitalization)
  Sender: FDA-Public Use
  Company Number: CA-JNJFOC-20140501413

PATIENT
  Age: 78 Year
  Sex: Female

DRUGS (2)
  1. ACETAMINOPHEN [Suspect]
     Route: 065
  2. ACETAMINOPHEN [Suspect]
     Indication: PRODUCT USED FOR UNKNOWN INDICATION
     Route: 065
     Dates: start: 19980711, end: 19980725

REACTIONS (5)
  - Acute hepatic failure [Fatal]
  - Brain oedema [Fatal]
  - Toxicity to various agents [Fatal]
  - Hepatic necrosis [Fatal]
  - Splenic infarction [Fatal]
